FAERS Safety Report 4415745-7 (Version None)
Quarter: 2004Q2

REPORT INFORMATION
  Report Type: 
  Country: None (occurrence: None)
  Receive Date: 20040630
  Receipt Date: 20040322
  Transmission Date: 20050107
  Serious: Yes (Other)
  Sender: FDA-Public Use
  Company Number: 2004019661

PATIENT
  Sex: Female

DRUGS (1)
  1. ZOLOFT [Suspect]
     Indication: MOOD SWINGS
     Dosage: ORAL
     Route: 048

REACTIONS (3)
  - ABNORMAL BEHAVIOUR [None]
  - PERSONALITY CHANGE [None]
  - SUICIDAL IDEATION [None]
